FAERS Safety Report 8133537-2 (Version None)
Quarter: 2012Q1

REPORT INFORMATION
  Report Type: 
  Country: None (occurrence: None)
  Receive Date: 20120213
  Receipt Date: 20120210
  Transmission Date: 20120608
  Serious: Yes (Life-Threatening, Hospitalization)
  Sender: FDA-Public Use
  Company Number: PHHY2012GB011746

PATIENT
  Sex: Female

DRUGS (1)
  1. VANCOMYCIN [Suspect]
     Indication: WOUND SEPSIS
     Dosage: 1000 MG, UNK
     Route: 042
     Dates: start: 20120123, end: 20120123

REACTIONS (5)
  - WHEEZING [None]
  - OBSTRUCTIVE AIRWAYS DISORDER [None]
  - SWELLING FACE [None]
  - ERYTHEMA [None]
  - CHEST DISCOMFORT [None]
